FAERS Safety Report 6092735-2 (Version None)
Quarter: 2009Q1

REPORT INFORMATION
  Report Type: 
  Country: None (occurrence: None)
  Receive Date: 20090225
  Receipt Date: 20090216
  Transmission Date: 20090719
  Serious: Yes (Other)
  Sender: FDA-Public Use
  Company Number: US-JNJFOC-20090204416

PATIENT
  Age: 57 Year
  Sex: Female
  Weight: 68.04 kg

DRUGS (2)
  1. EXTRA STRENGTH TYLENOL [Suspect]
     Indication: HEADACHE
     Route: 048
  2. EXTRA STRENGTH TYLENOL [Suspect]
     Indication: FALL
     Route: 048

REACTIONS (10)
  - BLOOD PRESSURE INCREASED [None]
  - CARDIOVASCULAR DISORDER [None]
  - DRUG INEFFECTIVE [None]
  - DYSPNOEA [None]
  - PRESYNCOPE [None]
  - PRODUCT QUALITY ISSUE [None]
  - PRODUCT TAMPERING [None]
  - PRURITUS [None]
  - SWELLING [None]
  - WHEEZING [None]
